FAERS Safety Report 9551459 (Version 1)
Quarter: 2013Q3

REPORT INFORMATION
  Report Type: Spontaneous
  Country: US (occurrence: None)
  Receive Date: 20130724
  Receipt Date: 20130724
  Transmission Date: 20140515
  Serious: Yes (Hospitalization, Other)
  Sender: FDA-Public Use
  Company Number: PHEH2013US006377

PATIENT
  Sex: Male

DRUGS (7)
  1. GLEEVEC [Suspect]
     Indication: GASTROINTESTINAL STROMAL TUMOUR
     Dosage: 400 MG, BY MOUTH DAILY WITH DINNER, ORAL
     Route: 048
     Dates: start: 2006
  2. ADVIL/ IBUPROFEN (IBUPROFEN) CAPSULE [Concomitant]
  3. HYDROCODONE (HYDROCODONE) TABLET [Concomitant]
  4. LIPITOR (ATORVASTATIN CALCIUM) TABLET [Concomitant]
  5. DIOVAN (VALSARTAN) TABLET [Concomitant]
  6. GLIMEPIRIDE (GLIMEPIRIDE) TABLET [Concomitant]
  7. HYDROCHLOROTH (HYDROCHLOROTHIAZIDE) CAPSULE [Concomitant]

REACTIONS (2)
  - Haemorrhage [None]
  - Herpes zoster [None]
